FAERS Safety Report 7114359-8 (Version None)
Quarter: 2010Q4

REPORT INFORMATION
  Report Type: 
  Country: None (occurrence: None)
  Receive Date: 20101119
  Receipt Date: 20101029
  Transmission Date: 20110411
  Serious: Yes (Hospitalization)
  Sender: FDA-Public Use
  Company Number: PHHO2007PE01186

PATIENT
  Sex: Male
  Weight: 13 kg

DRUGS (1)
  1. ELIDEL [Suspect]
     Indication: DERMATITIS ATOPIC
     Dosage: APPLIED TWICE DAILY
     Route: 061
     Dates: start: 20040731, end: 20050616

REACTIONS (8)
  - BLEPHARITIS [None]
  - CHEST X-RAY ABNORMAL [None]
  - DECREASED APPETITE [None]
  - DISCOMFORT [None]
  - MACULE [None]
  - PYREXIA [None]
  - RASH VESICULAR [None]
  - VARICELLA [None]
